FAERS Safety Report 19737047 (Version 1)
Quarter: 2021Q3

REPORT INFORMATION
  Report Type: Spontaneous
  Country: CN (occurrence: CN)
  Receive Date: 20210823
  Receipt Date: 20210823
  Transmission Date: 20211014
  Serious: Yes (Other)
  Sender: FDA-Public Use
  Company Number: CN-BAYER-2021-196944

PATIENT
  Age: 40 Year
  Sex: Female

DRUGS (2)
  1. IOPROMIDE. [Suspect]
     Active Substance: IOPROMIDE
     Indication: THYROID MASS
     Dosage: 37 G, ONCE
     Route: 041
     Dates: start: 20210814, end: 20210814
  2. IOPROMIDE. [Suspect]
     Active Substance: IOPROMIDE
     Indication: SCAN THYROID GLAND

REACTIONS (7)
  - Amaurosis fugax [Recovering/Resolving]
  - Hypoaesthesia [Recovering/Resolving]
  - Pruritus [Recovering/Resolving]
  - Erythema [Recovering/Resolving]
  - Vision blurred [Recovering/Resolving]
  - Conjunctival hyperaemia [Recovering/Resolving]
  - Blood pressure decreased [Recovering/Resolving]

NARRATIVE: CASE EVENT DATE: 20210814
